FAERS Safety Report 9342075 (Version 2)
Quarter: 2013Q2

REPORT INFORMATION
  Report Type: Spontaneous
  Country: BR (occurrence: BR)
  Receive Date: 20130611
  Receipt Date: 20130626
  Transmission Date: 20140414
  Serious: Yes (Disabling, Other)
  Sender: FDA-Public Use
  Company Number: BR-009507513-1306BRA003490

PATIENT
  Age: 58 Year
  Sex: Male
  Weight: 79 kg

DRUGS (8)
  1. VICTRELIS [Suspect]
     Indication: HEPATITIS C
     Dosage: UNK UNK, UNKNOWN
     Route: 048
     Dates: start: 20130225
  2. PEG-INTRON [Suspect]
     Indication: HEPATITIS C
     Dosage: 0.6 ML, QW
     Route: 058
     Dates: start: 20130225
  3. RIBAVIRIN [Concomitant]
     Indication: HEPATITIS C
     Dosage: 500 MG, QAM
     Route: 048
  4. RIBAVIRIN [Concomitant]
     Dosage: 750 MG, QPM
     Route: 048
  5. METFORMIN [Concomitant]
     Indication: DIABETES MELLITUS
     Dosage: 1000 MG, QD
  6. GLYBURIDE [Concomitant]
     Indication: DIABETES MELLITUS
  7. GLIMEPIRIDE [Concomitant]
     Indication: DIABETES MELLITUS
     Dosage: 4 MG, QAM
  8. INSULIN [Concomitant]
     Indication: DIABETES MELLITUS
     Dosage: 20 IU, PRN

REACTIONS (13)
  - Gait disturbance [Not Recovered/Not Resolved]
  - Deafness [Not Recovered/Not Resolved]
  - Asthenia [Not Recovered/Not Resolved]
  - Hepatic cirrhosis [Not Recovered/Not Resolved]
  - Feeling abnormal [Not Recovered/Not Resolved]
  - Weight decreased [Not Recovered/Not Resolved]
  - Dyspnoea [Not Recovered/Not Resolved]
  - Anaemia [Not Recovered/Not Resolved]
  - Nausea [Not Recovered/Not Resolved]
  - Decreased appetite [Not Recovered/Not Resolved]
  - Insomnia [Not Recovered/Not Resolved]
  - Dysgeusia [Not Recovered/Not Resolved]
  - Pruritus [Not Recovered/Not Resolved]
